FAERS Safety Report 6992468-1 (Version None)
Quarter: 2010Q3

REPORT INFORMATION
  Report Type: 
  Country: None (occurrence: None)
  Receive Date: 20100917
  Receipt Date: 20100913
  Transmission Date: 20110219
  Serious: Yes (Death, Hospitalization)
  Sender: FDA-Public Use
  Company Number: PHHY2010JP60664

PATIENT
  Sex: Male
  Weight: 92 kg

DRUGS (9)
  1. SIMULECT [Suspect]
     Indication: RENAL TRANSPLANT
     Dosage: 20 MG, ONCE/SINGLE
     Route: 042
     Dates: start: 20090422, end: 20090422
  2. SIMULECT [Suspect]
     Dosage: 20 MG, ONCE/SINGLE
     Route: 042
     Dates: start: 20090426, end: 20090426
  3. NEORAL [Suspect]
     Indication: RENAL TRANSPLANT
     Dosage: 250 TO 750 MG DAILY
     Route: 048
     Dates: start: 20090420, end: 20091013
  4. SOLU-MEDROL [Suspect]
     Indication: RENAL TRANSPLANT
     Dosage: 20 TO 500 MG DAILY
     Route: 042
     Dates: start: 20090422, end: 20090504
  5. CELLCEPT [Suspect]
     Indication: RENAL TRANSPLANT
     Dosage: 1000 TO 1500 MG DAILY
     Route: 048
     Dates: start: 20090420, end: 20091013
  6. MEDROL [Suspect]
     Indication: RENAL TRANSPLANT
     Dosage: 8 TO 20 MG DAILY
     Route: 048
     Dates: start: 20090505, end: 20091013
  7. SANDIMMUNE [Concomitant]
     Indication: RENAL TRANSPLANT
     Dosage: 270 MG, UNK
     Dates: start: 20090422, end: 20090424
  8. OLMETEC [Concomitant]
     Indication: HYPERTENSION
     Dosage: 20 MG, UNK
     Route: 048
     Dates: start: 20090702, end: 20091013
  9. AMLODIPINE BESYLATE [Concomitant]
     Indication: HYPERTENSION
     Dosage: 10 MG, UNK
     Route: 048
     Dates: start: 20091013

REACTIONS (2)
  - CARDIO-RESPIRATORY ARREST [None]
  - GASTROINTESTINAL HAEMORRHAGE [None]
